FAERS Safety Report 6158667-6 (Version None)
Quarter: 2009Q2

REPORT INFORMATION
  Report Type: 
  Country: None (occurrence: None)
  Receive Date: 20090417
  Receipt Date: 20090410
  Transmission Date: 20091009
  Serious: Yes (Hospitalization)
  Sender: FDA-Public Use
  Company Number: US-ASTRAZENECA-2008UW27649

PATIENT
  Age: 35 Year
  Sex: Male
  Weight: 81.6 kg

DRUGS (8)
  1. SEROQUEL [Suspect]
     Indication: INSOMNIA
     Route: 048
     Dates: start: 19980101, end: 20030101
  2. SEROQUEL [Suspect]
     Indication: DEPRESSION
     Route: 048
     Dates: start: 19980101, end: 20030101
  3. SEROQUEL [Suspect]
     Indication: BIPOLAR DISORDER
     Route: 048
     Dates: start: 19980101, end: 20030101
  4. SEROQUEL [Suspect]
     Indication: SCHIZOPHRENIA
     Route: 048
     Dates: start: 19980101, end: 20030101
  5. ABILIFY [Concomitant]
     Dates: start: 20060101
  6. GEODON [Concomitant]
     Dates: start: 20060101, end: 20090101
  7. RISPERDAL [Concomitant]
     Dates: start: 20010101, end: 20030101
  8. LITHIUM CARBONATE [Concomitant]
     Dates: start: 20060101

REACTIONS (2)
  - DIABETES MELLITUS [None]
  - KNEE OPERATION [None]
